FAERS Safety Report 6367825-7 (Version None)
Quarter: 2009Q3

REPORT INFORMATION
  Report Type: 
  Country: None (occurrence: None)
  Receive Date: 20090921
  Receipt Date: 20090911
  Transmission Date: 20100115
  Serious: Yes (Other)
  Sender: FDA-Public Use
  Company Number: US-ABBOTT-09P-163-0574152-00

PATIENT
  Sex: Male
  Weight: 93.07 kg

DRUGS (5)
  1. KALETRA [Suspect]
     Indication: ACQUIRED IMMUNODEFICIENCY SYNDROME
     Route: 048
     Dates: start: 20070101
  2. KALETRA [Interacting]
     Indication: HIV INFECTION
  3. SOTALOL HCL [Interacting]
     Indication: DRUG USE FOR UNKNOWN INDICATION
  4. EPZICOM [Concomitant]
     Indication: HIV INFECTION
  5. VIREAD [Concomitant]
     Indication: HIV INFECTION

REACTIONS (6)
  - ASTHENIA [None]
  - BLOOD TRIGLYCERIDES INCREASED [None]
  - CARDIAC ABLATION [None]
  - DIARRHOEA [None]
  - DRUG INTERACTION [None]
  - MALAISE [None]
